FAERS Safety Report 7590355-1 (Version None)
Quarter: 2011Q3

REPORT INFORMATION
  Report Type: 
  Country: None (occurrence: None)
  Receive Date: 20110705
  Receipt Date: 20110622
  Transmission Date: 20111222
  Serious: Yes (Other)
  Sender: FDA-Public Use
  Company Number: GB-ELI_LILLY_AND_COMPANY-GB201106006692

PATIENT
  Sex: Male

DRUGS (2)
  1. CISPLATIN [Concomitant]
  2. ALIMTA [Suspect]

REACTIONS (1)
  - RENAL IMPAIRMENT [None]
